FAERS Safety Report 4618969-9 (Version None)
Quarter: 2005Q1

REPORT INFORMATION
  Report Type: 
  Country: None (occurrence: None)
  Receive Date: 20050325
  Receipt Date: 20050317
  Transmission Date: 20050727
  Serious: Yes (Hospitalization, Disabling)
  Sender: FDA-Public Use
  Company Number: 200512518GDDC

PATIENT
  Age: 67 Year
  Sex: Female

DRUGS (7)
  1. ARAVA [Suspect]
     Route: 048
     Dates: start: 20021101, end: 20041101
  2. NAPROXEN [Concomitant]
     Route: 048
     Dates: end: 20050301
  3. OMEPRAZOLE [Concomitant]
     Route: 048
     Dates: end: 20050301
  4. ALENDRONATE SODIUM [Concomitant]
     Route: 048
     Dates: end: 20050301
  5. METILPREDNISOLONE [Concomitant]
     Route: 048
  6. CA++ [Concomitant]
     Route: 048
     Dates: end: 20050301
  7. VITAMIN D3 [Concomitant]
     Route: 048
     Dates: end: 20050301

REACTIONS (2)
  - ASEPTIC NECROSIS BONE [None]
  - SKIN ULCER [None]
